FAERS Safety Report 17893085 (Version 2)
Quarter: 2020Q3

REPORT INFORMATION
  Report Type: Spontaneous
  Country: US (occurrence: US)
  Receive Date: 20200614
  Receipt Date: 20200827
  Transmission Date: 20201103
  Serious: No
  Sender: FDA-Public Use
  Company Number: US-ASTRAZENECA-2020SE74123

PATIENT
  Age: 35 Year
  Sex: Female

DRUGS (1)
  1. SYMLIN [Suspect]
     Active Substance: PRAMLINTIDE ACETATE
     Route: 058

REACTIONS (3)
  - Blood glucose increased [Unknown]
  - Intentional device misuse [Unknown]
  - Device issue [Unknown]
